FAERS Safety Report 8309418-8 (Version None)
Quarter: 2012Q2

REPORT INFORMATION
  Report Type: 
  Country: None (occurrence: None)
  Receive Date: 20120420
  Receipt Date: 20120410
  Transmission Date: 20120825
  Serious: Yes (Other)
  Sender: FDA-Public Use
  Company Number: DEP_00618_2012

PATIENT
  Sex: Male
  Weight: 77.1115 kg

DRUGS (7)
  1. OPANA [Concomitant]
  2. LEVACAINE [Concomitant]
  3. FENTANYL-100 [Concomitant]
  4. LYRICA [Concomitant]
  5. GRALISE [Suspect]
     Indication: HERPES ZOSTER
     Dosage: (STARTER PACK, AT DINNER ORAL), (2 DF, AT DINNER ORAL), (1 DF, 1 PILL, AT DINNER ORAL)
     Route: 048
     Dates: start: 20120408, end: 20120409
  6. GRALISE [Suspect]
     Indication: HERPES ZOSTER
     Dosage: (STARTER PACK, AT DINNER ORAL), (2 DF, AT DINNER ORAL), (1 DF, 1 PILL, AT DINNER ORAL)
     Route: 048
     Dates: start: 20120409, end: 20120409
  7. GRALISE [Suspect]
     Indication: HERPES ZOSTER
     Dosage: (STARTER PACK, AT DINNER ORAL), (2 DF, AT DINNER ORAL), (1 DF, 1 PILL, AT DINNER ORAL)
     Route: 048
     Dates: start: 20120330, end: 20120408

REACTIONS (5)
  - IRRITABILITY [None]
  - NIGHT SWEATS [None]
  - ORAL HERPES [None]
  - ARTHRALGIA [None]
  - SUICIDAL IDEATION [None]
